FAERS Safety Report 22335801 (Version 1)
Quarter: 2023Q2

REPORT INFORMATION
  Report Type: Spontaneous
  Country: ES (occurrence: ES)
  Receive Date: 20230518
  Receipt Date: 20230518
  Transmission Date: 20230722
  Serious: Yes (Other)
  Sender: FDA-Public Use
  Company Number: None

PATIENT
  Age: 35 Year
  Sex: Male

DRUGS (5)
  1. ETOPOSIDE [Suspect]
     Active Substance: ETOPOSIDE
     Indication: Germ cell neoplasm
     Dosage: 197 MG/DAY, DAYS 1-5 OF THE 21-DAY CYCLE, LAST DOSE BEFORE RAM: 03/31/2023, ETOPOSIDO (518A)
     Route: 065
     Dates: start: 20230213
  2. CISPLATIN [Suspect]
     Active Substance: CISPLATIN
     Indication: Germ cell neoplasm
     Dosage: DOSE: 39.4 MG/DAY, DAYS 1-5 OF THE 21-DAY CYCLE. LAST DOSE BEFORE RAM: 03/31/2023, CISPLATINO (644A)
     Route: 065
     Dates: start: 20230213
  3. BLEOMYCIN [Suspect]
     Active Substance: BLEOMYCIN SULFATE
     Indication: Germ cell neoplasm
     Dosage: RECEIVED A DOSE ON 04/04/023, THE SAME DAY AS THE RAM, BLEOMICINA (68A)
     Route: 065
     Dates: start: 20230213
  4. ZIEXTENZO [Suspect]
     Active Substance: PEGFILGRASTIM-BMEZ
     Indication: Chemotherapy cytokine prophylaxis
     Dosage: PREVIOUSLY WITH ANOTHER BIOSIMILAR, FIRST DOSE OF ZIEXTENZO ON 04/04/2023, 1 PRE-FILLED SYRINGE OF 0
     Route: 065
     Dates: start: 20230404, end: 20230404
  5. PEGFILGRASTIM [Concomitant]
     Active Substance: PEGFILGRASTIM
     Indication: Prophylaxis
     Dosage: 1 PRE-FILLED SYRINGE
     Route: 065
     Dates: start: 20230221, end: 20230314

REACTIONS (2)
  - Malaise [Recovered/Resolved]
  - Syncope [Recovered/Resolved]

NARRATIVE: CASE EVENT DATE: 20230404
